FAERS Safety Report 5170342-3 (Version None)
Quarter: 2006Q4

REPORT INFORMATION
  Report Type: 
  Country: None (occurrence: None)
  Receive Date: 20061204
  Receipt Date: 20061128
  Transmission Date: 20070319
  Serious: Yes (Other)
  Sender: FDA-Public Use
  Company Number: 230003M06SWE

PATIENT
  Age: 44 Year
  Sex: Female

DRUGS (2)
  1. REBIF [Suspect]
  2. SOLU-MEDROL [Concomitant]

REACTIONS (1)
  - CONGESTIVE CARDIOMYOPATHY [None]
